FAERS Safety Report 4978694-1 (Version None)
Quarter: 2006Q2

REPORT INFORMATION
  Report Type: 
  Country: None (occurrence: None)
  Receive Date: 20060420
  Receipt Date: 20060324
  Transmission Date: 20061013
  Serious: Yes (Hospitalization, Other)
  Sender: FDA-Public Use
  Company Number: US-MERCK-0603USA04105

PATIENT
  Age: 63 Year
  Sex: Female
  Weight: 53 kg

DRUGS (5)
  1. VIOXX [Suspect]
     Indication: PAIN IN EXTREMITY
     Route: 048
     Dates: start: 20001222, end: 20031029
  2. VIOXX [Suspect]
     Indication: ARTHRALGIA
     Route: 048
     Dates: start: 20001222, end: 20031029
  3. TRAZODONE HYDROCHLORIDE [Concomitant]
     Route: 065
  4. CALCIUM (UNSPECIFIED) [Concomitant]
     Route: 065
  5. ONE-A-DAY ESSENTIAL VITAMINS [Concomitant]
     Route: 065

REACTIONS (19)
  - ABDOMINAL PAIN [None]
  - AMNESIA [None]
  - ASTHENIA [None]
  - BLOOD PRESSURE INCREASED [None]
  - CEREBROVASCULAR ACCIDENT [None]
  - CHEST PAIN [None]
  - DIZZINESS [None]
  - FACIAL PAIN [None]
  - FLAT FEET [None]
  - GAIT DISTURBANCE [None]
  - HYPERREFLEXIA [None]
  - NECK PAIN [None]
  - PAIN [None]
  - PAIN IN EXTREMITY [None]
  - PALPITATIONS [None]
  - SHOULDER PAIN [None]
  - TENDONITIS [None]
  - TOE DEFORMITY [None]
  - VISION BLURRED [None]
